FAERS Safety Report 11798432 (Version 4)
Quarter: 2016Q2

REPORT INFORMATION
  Report Type: Spontaneous
  Country: US (occurrence: US)
  Receive Date: 20151203
  Receipt Date: 20160628
  Transmission Date: 20160815
  Serious: Yes (Hospitalization, Other)
  Sender: FDA-Public Use
  Company Number: US-GLAXOSMITHKLINE-US2015172201

PATIENT
  Age: 71 Year
  Sex: Male

DRUGS (5)
  1. COMBIVENT [Concomitant]
     Active Substance: ALBUTEROL SULFATE\IPRATROPIUM BROMIDE
  2. LISINOPRIL. [Concomitant]
     Active Substance: LISINOPRIL
  3. ADVAIR DISKUS [Suspect]
     Active Substance: FLUTICASONE PROPIONATE\SALMETEROL XINAFOATE
     Indication: CHRONIC OBSTRUCTIVE PULMONARY DISEASE
     Dosage: 1 PUFF(S), BID
     Route: 055
  4. ALTEPLASE [Suspect]
     Active Substance: ALTEPLASE
     Indication: COAGULOPATHY
  5. WARFARIN [Concomitant]
     Active Substance: WARFARIN

REACTIONS (20)
  - Choking [Recovering/Resolving]
  - Coagulopathy [Unknown]
  - Rehabilitation therapy [Unknown]
  - Lung disorder [Unknown]
  - Dyspnoea [Unknown]
  - Dysarthria [Unknown]
  - Paralysis [Unknown]
  - Hypersensitivity [Recovered/Resolved]
  - Gastrointestinal tube insertion [Unknown]
  - Respiratory arrest [Recovered/Resolved]
  - Physiotherapy [Unknown]
  - Biopsy lung [Unknown]
  - Drug hypersensitivity [Unknown]
  - Feeding tube user [Unknown]
  - Brain stem infarction [Recovered/Resolved with Sequelae]
  - Dysphagia [Unknown]
  - Chronic obstructive pulmonary disease [Unknown]
  - Speech disorder [Unknown]
  - Hemiplegia [Unknown]
  - Occupational therapy [Unknown]

NARRATIVE: CASE EVENT DATE: 2013
